FAERS Safety Report 15113827 (Version 3)
Quarter: 2019Q3

REPORT INFORMATION
  Report Type: Report from Study
  Country: DE (occurrence: DE)
  Receive Date: 20180706
  Receipt Date: 20190820
  Transmission Date: 20191004
  Serious: Yes (Other)
  Sender: FDA-Public Use
  Company Number: DE-BRISTOL-MYERS SQUIBB COMPANY-BMS-2018-062770

PATIENT
  Age: 60 Year
  Sex: Male
  Weight: 63 kg

DRUGS (2)
  1. ASPIRIN. [Suspect]
     Active Substance: ASPIRIN
     Indication: ANTICOAGULANT THERAPY
     Dosage: UNK
     Route: 065
  2. APIXABAN [Suspect]
     Active Substance: APIXABAN
     Indication: EMBOLISM VENOUS
     Dosage: 10 MILLIGRAM, BID
     Route: 048
     Dates: start: 20170620, end: 20170929

REACTIONS (1)
  - Deep vein thrombosis [Unknown]

NARRATIVE: CASE EVENT DATE: 20180612
